FAERS Safety Report 8829149 (Version 2)
Quarter: 2013Q1

REPORT INFORMATION
  Report Type: Spontaneous
  Country: US (occurrence: US)
  Receive Date: 20121008
  Receipt Date: 20130128
  Transmission Date: 20140127
  Serious: No
  Sender: FDA-Public Use
  Company Number: US-009507513-1210USA002482

PATIENT
  Sex: Female
  Weight: 57.6 kg

DRUGS (2)
  1. MIRALAX [Suspect]
     Indication: GASTROINTESTINAL HYPOMOTILITY
     Dosage: 17 G, TID
     Route: 048
     Dates: start: 2010, end: 2012
  2. MIRALAX [Suspect]
     Indication: MEDICAL OBSERVATION

REACTIONS (4)
  - Pain [Not Recovered/Not Resolved]
  - Flatulence [Not Recovered/Not Resolved]
  - Abdominal distension [Not Recovered/Not Resolved]
  - Incorrect drug administration rate [Unknown]
